FAERS Safety Report 4503377-1 (Version None)
Quarter: 2004Q4

REPORT INFORMATION
  Report Type: 
  Country: None (occurrence: None)
  Receive Date: 20041117
  Receipt Date: 20041115
  Transmission Date: 20050328
  Serious: Yes (Hospitalization)
  Sender: FDA-Public Use
  Company Number: US-GLAXOSMITHKLINE-A0533950A

PATIENT
  Age: 67 Year
  Sex: Female

DRUGS (8)
  1. THORAZINE [Suspect]
     Indication: MEDICATION ERROR
     Dosage: 100MGML VARIABLE DOSE
     Route: 002
  2. NORVASC [Concomitant]
     Indication: DRUG USE FOR UNKNOWN INDICATION
  3. LASIX [Concomitant]
     Indication: DRUG USE FOR UNKNOWN INDICATION
  4. PREVACID [Concomitant]
     Indication: DRUG USE FOR UNKNOWN INDICATION
  5. VASOTEC [Concomitant]
     Indication: DRUG USE FOR UNKNOWN INDICATION
  6. ZOCOR [Concomitant]
     Indication: DRUG USE FOR UNKNOWN INDICATION
  7. LEVOXYL [Concomitant]
     Indication: DRUG USE FOR UNKNOWN INDICATION
  8. LEXAPRO [Concomitant]
     Indication: DRUG USE FOR UNKNOWN INDICATION

REACTIONS (2)
  - CONVULSION [None]
  - MEDICATION ERROR [None]
